FAERS Safety Report 12873500 (Version 1)
Quarter: 2016Q4

REPORT INFORMATION
  Report Type: Spontaneous
  Country: US (occurrence: US)
  Receive Date: 20161021
  Receipt Date: 20161021
  Transmission Date: 20170207
  Serious: No
  Sender: FDA-Public Use
  Company Number: US-ASTRAZENECA-2016SF08046

PATIENT
  Sex: Female

DRUGS (1)
  1. LYNPARZA [Suspect]
     Active Substance: OLAPARIB
     Dosage: 8 TABLETS A DAY
     Route: 048

REACTIONS (4)
  - Product physical issue [Unknown]
  - Nausea [Unknown]
  - Vomiting [Unknown]
  - Product quality issue [Unknown]
